FAERS Safety Report 26213046 (Version 1)
Quarter: 2025Q4

REPORT INFORMATION
  Report Type: Spontaneous
  Country: IN (occurrence: IN)
  Receive Date: 20251230
  Receipt Date: 20251230
  Transmission Date: 20260119
  Serious: Yes (Death, Life-Threatening)
  Sender: MACLEODS
  Company Number: IN-MACLEODS PHARMACEUTICALS LTD-MAC2022037682

PATIENT

DRUGS (1)
  1. LINEZOLID [Suspect]
     Active Substance: LINEZOLID
     Indication: Post procedural infection
     Dosage: 600 MILLIGRAM, BID
     Route: 048

REACTIONS (7)
  - Acute lung injury [Fatal]
  - Aspiration [Fatal]
  - Metabolic acidosis [Not Recovered/Not Resolved]
  - Toxicity to various agents [Not Recovered/Not Resolved]
  - Inappropriate antidiuretic hormone secretion [Not Recovered/Not Resolved]
  - Hypoglycaemia [Not Recovered/Not Resolved]
  - Myelosuppression [Not Recovered/Not Resolved]
